FAERS Safety Report 25917339 (Version 2)
Quarter: 2025Q4

REPORT INFORMATION
  Report Type: Other
  Country: GB (occurrence: GB)
  Receive Date: 20251014
  Receipt Date: 20251204
  Transmission Date: 20260117
  Serious: Yes (Other)
  Sender: ASPEN
  Company Number: GB-STEMLINE THERAPEUTICS, INC-2025-STML-GB003295

PATIENT

DRUGS (4)
  1. DEXAMETHASONE [Suspect]
     Active Substance: DEXAMETHASONE
     Indication: Plasma cell myeloma refractory
     Dosage: UNK
     Route: 048
     Dates: start: 202411
  2. DEXAMETHASONE [Suspect]
     Active Substance: DEXAMETHASONE
     Dosage: 10 MG, 2/WEEK (48 HOURS APART )
     Route: 048
     Dates: start: 202411
  3. SELINEXOR [Suspect]
     Active Substance: SELINEXOR
     Indication: Plasma cell myeloma refractory
     Dosage: 120 MILLIGRAM, 120 MG (2 X 60MG)
     Route: 048
     Dates: start: 202411
  4. SELINEXOR [Suspect]
     Active Substance: SELINEXOR
     Dosage: 60 MG, 2/WEEK (60 MG TWICE WEEKLY 48 HOURS APART)
     Route: 048
     Dates: start: 202411

REACTIONS (1)
  - Thrombocytopenia [Recovered/Resolved]

NARRATIVE: CASE EVENT DATE: 20241219
